FAERS Safety Report 26021067 (Version 1)
Quarter: 2025Q4

REPORT INFORMATION
  Report Type: Spontaneous
  Country: US (occurrence: None)
  Receive Date: 20251107
  Receipt Date: 20251107
  Transmission Date: 20260119
  Serious: No
  Sender: FDA-CTU
  Company Number: None

PATIENT
  Sex: Female

DRUGS (1)
  1. KISQALI [Suspect]
     Active Substance: RIBOCICLIB SUCCINATE
     Indication: Breast cancer
     Dosage: 400 MG 1 TIME A DAY FOR 21 DAYS OF A 28 DAY CYCLE ORAL?
     Route: 048

REACTIONS (2)
  - Liver injury [None]
  - Therapy cessation [None]
